FAERS Safety Report 9670474 (Version 3)
Quarter: 2013Q4

REPORT INFORMATION
  Report Type: Report from Study
  Country: US (occurrence: US)
  Receive Date: 20131106
  Receipt Date: 20131113
  Transmission Date: 20140711
  Serious: Yes (Other)
  Sender: FDA-Public Use
  Company Number: US-ROCHE-1272577

PATIENT
  Sex: Female

DRUGS (10)
  1. LUCENTIS [Suspect]
     Indication: DIABETIC RETINOPATHY
     Dosage: BOTH EYES, OD ON 22-AUG-2013
     Route: 050
     Dates: start: 20130822, end: 20130822
  2. LUCENTIS [Suspect]
     Indication: TYPE 2 DIABETES MELLITUS
     Dosage: OD AND OS
     Route: 050
     Dates: start: 20131003
  3. LUCENTIS [Suspect]
     Indication: VITREOUS HAEMORRHAGE
     Dosage: OD
     Route: 050
     Dates: start: 20131104
  4. LUCENTIS [Suspect]
     Indication: EYE DISORDER
  5. AMLOPIDINE DURA [Concomitant]
  6. LIPITOR [Concomitant]
  7. CARVEDILOL [Concomitant]
  8. WARFARIN [Concomitant]
  9. COREG [Concomitant]
  10. TIMOLOL [Concomitant]
     Route: 065

REACTIONS (5)
  - Blindness unilateral [Unknown]
  - Vitreous floaters [Unknown]
  - Vision blurred [Unknown]
  - Blood glucose increased [Unknown]
  - Photopsia [Unknown]
